FAERS Safety Report 5154639-9 (Version None)
Quarter: 2006Q4

REPORT INFORMATION
  Report Type: 
  Country: None (occurrence: None)
  Receive Date: 20061113
  Receipt Date: 20061030
  Transmission Date: 20070319
  Serious: Yes (Other)
  Sender: FDA-Public Use
  Company Number: L06-MEX-04556-01

PATIENT
  Age: 13 Year
  Sex: Female

DRUGS (2)
  1. ESCITALOPRAM OXALATE [Suspect]
  2. ESCITALOPRAM OXALATE [Suspect]

REACTIONS (2)
  - CUTANEOUS VASCULITIS [None]
  - DRUG HYPERSENSITIVITY [None]
